FAERS Safety Report 7889646-6 (Version None)
Quarter: 2011Q4

REPORT INFORMATION
  Report Type: 
  Country: None (occurrence: None)
  Receive Date: 20111103
  Receipt Date: 20111031
  Transmission Date: 20120403
  Serious: No
  Sender: FDA-Public Use
  Company Number: US-PFIZER INC-2011235301

PATIENT
  Sex: Female

DRUGS (4)
  1. SUTENT [Suspect]
     Indication: RENAL CANCER
     Dosage: 12.5 MG X 4 CAPSULES, AT BED TIME FOR 4 WEEKS ON, THEN 2 WEEKS OFF
     Route: 048
     Dates: start: 20110826
  2. POTASSIUM CHLORIDE [Concomitant]
     Indication: PROPHYLAXIS
     Dosage: 20 MEQ, UNK
     Route: 048
     Dates: start: 20110826
  3. FUROSEMIDE [Concomitant]
     Indication: FLUID RETENTION
     Dosage: 20 MG, DAILY
     Route: 048
     Dates: start: 20110816
  4. LISINOPRIL AND HYDROCHLOROTHIAZIDE [Concomitant]
     Indication: HYPERTENSION
     Dosage: 2 TABS DAILY
     Route: 048
     Dates: start: 20100604

REACTIONS (3)
  - WEIGHT DECREASED [None]
  - FATIGUE [None]
  - DECREASED APPETITE [None]
